FAERS Safety Report 18036135 (Version 1)
Quarter: 2020Q3

REPORT INFORMATION
  Report Type: Spontaneous
  Country: US (occurrence: US)
  Receive Date: 20200716
  Receipt Date: 20200716
  Transmission Date: 20201103
  Serious: No
  Sender: FDA-Public Use
  Company Number: None

PATIENT
  Age: 76 Year
  Sex: Male

DRUGS (1)
  1. CEFEPIME (CEFEPIME HCL 2GM/BAG INJ) [Suspect]
     Active Substance: CEFEPIME HYDROCHLORIDE
     Indication: SEPSIS
     Route: 042
     Dates: start: 20180806, end: 20180806

REACTIONS (2)
  - Myoclonus [None]
  - Delirium [None]

NARRATIVE: CASE EVENT DATE: 20180810
